FAERS Safety Report 22240867 (Version 1)
Quarter: 2023Q2

REPORT INFORMATION
  Report Type: Spontaneous
  Country: US (occurrence: None)
  Receive Date: 20230420
  Receipt Date: 20230420
  Transmission Date: 20230721
  Serious: No
  Sender: FDA-Public Use
  Company Number: None

PATIENT
  Age: 92 Year
  Sex: Male
  Weight: 78.2 kg

DRUGS (18)
  1. ABIRATERONE ACETATE [Suspect]
     Active Substance: ABIRATERONE ACETATE
     Indication: Prostate cancer
     Dosage: FREQUENCY : DAILY;?
     Route: 048
     Dates: start: 20220712
  2. FENTANYL [Concomitant]
     Active Substance: FENTANYL
  3. GABAPENTIN [Concomitant]
     Active Substance: GABAPENTIN
  4. GLUCOSAMINE SULFATE [Concomitant]
     Active Substance: GLUCOSAMINE SULFATE
  5. HYDROCHLOROTHIAZIDE [Concomitant]
     Active Substance: HYDROCHLOROTHIAZIDE
  6. ISOSORBIDE MONONITRATE [Concomitant]
     Active Substance: ISOSORBIDE MONONITRATE
  7. LIPITOR [Concomitant]
     Active Substance: ATORVASTATIN CALCIUM
  8. LUPRON DEPOT [Concomitant]
     Active Substance: LEUPROLIDE ACETATE
  9. MAGNESIUM OXIDE [Concomitant]
     Active Substance: MAGNESIUM OXIDE
  10. MELATONIN [Concomitant]
     Active Substance: MELATONIN
  11. METOPROLOL SUCCINATE [Concomitant]
     Active Substance: METOPROLOL SUCCINATE
  12. VITAMINS [Concomitant]
     Active Substance: VITAMINS
  13. NITROGLYCERIN [Concomitant]
     Active Substance: NITROGLYCERIN
  14. NORVASC [Concomitant]
     Active Substance: AMLODIPINE BESYLATE
  15. OMEPRAZOLE [Concomitant]
     Active Substance: OMEPRAZOLE
  16. SENOKOT-S [Concomitant]
     Active Substance: DOCUSATE SODIUM\SENNOSIDES
  17. TRAMADOL [Concomitant]
     Active Substance: TRAMADOL
  18. VITAMIN B12 [Concomitant]
     Active Substance: CYANOCOBALAMIN

REACTIONS (2)
  - Prostatic specific antigen [None]
  - Therapy cessation [None]
